FAERS Safety Report 4337628-3 (Version None)
Quarter: 2004Q2

REPORT INFORMATION
  Report Type: 
  Country: None (occurrence: None)
  Receive Date: 20040413
  Receipt Date: 20040218
  Transmission Date: 20050107
  Serious: No
  Sender: FDA-Public Use
  Company Number: US-GLAXOSMITHKLINE-A0498753A

PATIENT
  Sex: Female

DRUGS (1)
  1. DEXEDRINE [Suspect]
     Indication: ILL-DEFINED DISORDER
     Dosage: 25MG THREE TIMES PER DAY
     Route: 048

REACTIONS (1)
  - RASH [None]
